FAERS Safety Report 25219158 (Version 1)
Quarter: 2025Q2

REPORT INFORMATION
  Report Type: Other
  Country: SE (occurrence: SE)
  Receive Date: 20250421
  Receipt Date: 20250421
  Transmission Date: 20250716
  Serious: Yes (Other)
  Sender: GLENMARK
  Company Number: None

PATIENT
  Age: 80 Year
  Sex: Female

DRUGS (1)
  1. DABIGATRAN ETEXILATE MESYLATE [Suspect]
     Active Substance: DABIGATRAN ETEXILATE MESYLATE
     Indication: Atrial fibrillation
     Route: 065

REACTIONS (3)
  - Cerebral infarction [Unknown]
  - Subarachnoid haemorrhage [Recovering/Resolving]
  - Cerebral amyloid angiopathy [Unknown]
